FAERS Safety Report 4942800-5 (Version None)
Quarter: 2006Q1

REPORT INFORMATION
  Report Type: 
  Country: None (occurrence: None)
  Receive Date: 20060314
  Receipt Date: 20060307
  Transmission Date: 20060701
  Serious: Yes (Hospitalization)
  Sender: FDA-Public Use
  Company Number: US-BRISTOL-MYERS SQUIBB COMPANY-13306378

PATIENT
  Sex: Female

DRUGS (2)
  1. TEQUIN [Suspect]
     Route: 048
  2. GLYBURIDE [Concomitant]

REACTIONS (1)
  - BLOOD GLUCOSE DECREASED [None]
